FAERS Safety Report 7401035 (Version 5)
Quarter: 2014Q4

REPORT INFORMATION
  Report Type: Spontaneous
  Country: FR (occurrence: NL)
  Receive Date: 20100527
  Receipt Date: 20141014
  Transmission Date: 20150529
  Serious: Yes (Other)
  Sender: FDA-Public Use
  Company Number: FR-MYLANLABS-2006S1006216

PATIENT

DRUGS (12)
  1. POTASSIUM BICARBONATE. [Concomitant]
     Active Substance: POTASSIUM BICARBONATE
     Dosage: UNK
     Route: 048
     Dates: start: 19921125
  2. L-CARNITHINE [Concomitant]
     Dosage: UNK
     Dates: start: 20060306
  3. MERCAPTAMINE BITARTRATE [Suspect]
     Active Substance: CYSTEAMINE
     Dosage: 2400 MG, QD
     Route: 048
  4. ALFACALCIDOL [Concomitant]
     Active Substance: ALFACALCIDOL
     Dosage: UNK
     Route: 048
     Dates: start: 19910508
  5. HUMAN GROWTH HORMONE, RECOMBINANT [Concomitant]
     Active Substance: SOMATROPIN
  6. FERROUS FUMARATE [Concomitant]
     Active Substance: FERROUS FUMARATE
     Dosage: UNK
     Route: 048
     Dates: start: 20040320
  7. SODIUM POTASSIUM PHOSPHATE [Concomitant]
     Dosage: UNK
     Route: 048
     Dates: start: 19910709
  8. MERCAPTAMINE BITARTRATE [Suspect]
     Active Substance: CYSTEAMINE
     Indication: CYSTINOSIS
     Dosage: UNK UNK, QD
     Route: 048
     Dates: start: 19980107
  9. MERCAPTAMINE BITARTRATE [Suspect]
     Active Substance: CYSTEAMINE
     Dosage: 2700 MG, QD
     Route: 048
     Dates: start: 200605, end: 200607
  10. SOMATROPIN [Concomitant]
     Active Substance: SOMATROPIN
     Dosage: UNK
     Route: 048
     Dates: start: 19940128
  11. MERCAPTAMINE BITARTRATE [Suspect]
     Active Substance: CYSTEAMINE
     Dosage: 2000 MG, QD
     Route: 048
  12. MERCAPTAMINE BITARTRATE [Suspect]
     Active Substance: CYSTEAMINE
     Dosage: 2400 MG, QD
     Route: 048
     Dates: start: 200607

REACTIONS (3)
  - Skin fragility [Recovered/Resolved]
  - Skin striae [Recovered/Resolved]
  - Intravascular papillary endothelial hyperplasia [Recovered/Resolved]
